FAERS Safety Report 16844329 (Version 1)
Quarter: 2019Q3

REPORT INFORMATION
  Report Type: Spontaneous
  Country: US (occurrence: US)
  Receive Date: 20190924
  Receipt Date: 20190924
  Transmission Date: 20191005
  Serious: No
  Sender: FDA-Public Use
  Company Number: US-ALLERGAN-1927025US

PATIENT
  Sex: Male
  Weight: 90.7 kg

DRUGS (1)
  1. SAPHRIS [Suspect]
     Active Substance: ASENAPINE MALEATE
     Indication: SCHIZOAFFECTIVE DISORDER BIPOLAR TYPE
     Dosage: UNK, QD
     Route: 060
     Dates: start: 201904, end: 2019

REACTIONS (1)
  - Therapeutic product effect incomplete [Unknown]

NARRATIVE: CASE EVENT DATE: 2019
